FAERS Safety Report 25070427 (Version 1)
Quarter: 2025Q1

REPORT INFORMATION
  Report Type: Spontaneous
  Country: FR (occurrence: FR)
  Receive Date: 20250312
  Receipt Date: 20250312
  Transmission Date: 20250409
  Serious: Yes (Hospitalization)
  Sender: TEVA
  Company Number: None

PATIENT
  Age: 89 Year
  Sex: Female
  Weight: 63 kg

DRUGS (2)
  1. VERAPAMIL [Interacting]
     Active Substance: VERAPAMIL HYDROCHLORIDE
     Indication: Atrial fibrillation
     Dosage: VERAPAMIL HYDROCHLORIDE
     Route: 048
     Dates: end: 20240620
  2. DIGOXIN [Interacting]
     Active Substance: DIGOXIN
     Indication: Atrial fibrillation
     Route: 048
     Dates: end: 20240620

REACTIONS (2)
  - Bradycardia [Recovered/Resolved]
  - Drug interaction [Recovered/Resolved]

NARRATIVE: CASE EVENT DATE: 20240614
